FAERS Safety Report 21314049 (Version 2)
Quarter: 2022Q4

REPORT INFORMATION
  Report Type: Report from Study
  Country: AU (occurrence: AU)
  Receive Date: 20220909
  Receipt Date: 20221206
  Transmission Date: 20230113
  Serious: Yes (Hospitalization, Other)
  Sender: FDA-Public Use
  Company Number: AU-ABBVIE-22K-008-4529168-00

PATIENT
  Age: 76 Year
  Sex: Female

DRUGS (2)
  1. CARBIDOPA\LEVODOPA [Suspect]
     Active Substance: CARBIDOPA\LEVODOPA
     Indication: Parkinson^s disease
     Dosage: 16 HOURS
     Route: 050
     Dates: start: 20210629
  2. CARBIDOPA\LEVODOPA [Suspect]
     Active Substance: CARBIDOPA\LEVODOPA

REACTIONS (8)
  - Large intestine infection [Recovered/Resolved]
  - Abdominal pain [Unknown]
  - Nephrolithiasis [Recovered/Resolved]
  - Gastrointestinal sounds abnormal [Unknown]
  - Device issue [Recovered/Resolved]
  - Device issue [Unknown]
  - Flatulence [Recovering/Resolving]
  - Defaecation urgency [Not Recovered/Not Resolved]

NARRATIVE: CASE EVENT DATE: 20220901
